FAERS Safety Report 21459132 (Version 1)
Quarter: 2022Q4

REPORT INFORMATION
  Report Type: Spontaneous
  Country: FR (occurrence: FR)
  Receive Date: 20221014
  Receipt Date: 20221014
  Transmission Date: 20230112
  Serious: Yes (Other)
  Sender: FDA-Public Use
  Company Number: FR-ABBVIE-4154779

PATIENT
  Age: 41 Year
  Sex: Female
  Weight: 157 kg

DRUGS (1)
  1. SKYRIZI [Suspect]
     Active Substance: RISANKIZUMAB-RZAA
     Indication: Product used for unknown indication
     Route: 058
     Dates: start: 202204, end: 20220531

REACTIONS (3)
  - Perineal ulceration [Unknown]
  - Monkeypox [Unknown]
  - Pain [Unknown]
